FAERS Safety Report 16542676 (Version 2)
Quarter: 2019Q3

REPORT INFORMATION
  Report Type: Spontaneous
  Country: ES (occurrence: ES)
  Receive Date: 20190709
  Receipt Date: 20190806
  Transmission Date: 20191004
  Serious: Yes (Life-Threatening, Hospitalization, Other)
  Sender: FDA-Public Use
  Company Number: ES-ACCORD-065430

PATIENT
  Age: 81 Year
  Sex: Female

DRUGS (9)
  1. LEVETIRACETAM. [Suspect]
     Active Substance: LEVETIRACETAM
     Indication: PRODUCT USED FOR UNKNOWN INDICATION
  2. CYPROHEPTADINE. [Suspect]
     Active Substance: CYPROHEPTADINE
     Indication: PRODUCT USED FOR UNKNOWN INDICATION
     Dosage: 4 MG EVERY 8 HOURS
  3. LORMETAZEPAM [Concomitant]
     Active Substance: LORMETAZEPAM
  4. TOLTERODINE/TOLTERODINE L-TARTRATE [Concomitant]
     Dates: start: 201506
  5. CITALOPRAM [Suspect]
     Active Substance: CITALOPRAM HYDROBROMIDE
     Indication: MAJOR DEPRESSION
     Dates: start: 201505
  6. LATANOPROST. [Concomitant]
     Active Substance: LATANOPROST
     Indication: CEREBROVASCULAR ACCIDENT
  7. MEGESTROL [Concomitant]
     Active Substance: MEGESTROL
  8. TRAMADOL/TRAMADOL HYDROCHLORIDE [Suspect]
     Active Substance: TRAMADOL HYDROCHLORIDE
     Indication: MAJOR DEPRESSION
  9. OMEPRAZOLE. [Concomitant]
     Active Substance: OMEPRAZOLE

REACTIONS (6)
  - Drug ineffective [Unknown]
  - Condition aggravated [Unknown]
  - Aphonia [Unknown]
  - Serotonin syndrome [Recovered/Resolved with Sequelae]
  - Dysphonia [Unknown]
  - Confusional state [Unknown]

NARRATIVE: CASE EVENT DATE: 20150708
